FAERS Safety Report 5194183-6 (Version None)
Quarter: 2006Q4

REPORT INFORMATION
  Report Type: 
  Country: None (occurrence: None)
  Receive Date: 20061222
  Receipt Date: 20061211
  Transmission Date: 20070319
  Serious: Yes (Other)
  Sender: FDA-Public Use
  Company Number: 2006BI012347

PATIENT
  Sex: Male

DRUGS (12)
  1. AVONEX [Suspect]
     Indication: MULTIPLE SCLEROSIS
     Dosage: 30 U G; QW; IM
     Route: 030
     Dates: start: 19961001
  2. AVONEX [Suspect]
     Indication: MULTIPLE SCLEROSIS
     Dosage: 30 UG; QW; IM
     Route: 030
     Dates: end: 20060701
  3. NEURONTIN [Concomitant]
  4. AMANTADINE HCL [Concomitant]
  5. DOXEPIN HCL [Concomitant]
  6. BACLOFEN [Concomitant]
  7. DURAMORPH PF [Concomitant]
  8. ZOCOR [Concomitant]
  9. ALBUTEROL [Concomitant]
  10. HYDROCHLOROTHIAZIDE [Concomitant]
  11. ADVAIR DISKUS 100/50 [Concomitant]
  12. PREVACID [Concomitant]

REACTIONS (1)
  - CHRONIC OBSTRUCTIVE PULMONARY DISEASE [None]
